FAERS Safety Report 6624139-5 (Version None)
Quarter: 2010Q1

REPORT INFORMATION
  Report Type: 
  Country: None (occurrence: None)
  Receive Date: 20100310
  Receipt Date: 20091027
  Transmission Date: 20100710
  Serious: No
  Sender: FDA-Public Use
  Company Number: US-BIOGENIDEC-2009BI034524

PATIENT
  Sex: Female

DRUGS (1)
  1. AVONEX [Suspect]
     Indication: MULTIPLE SCLEROSIS
     Route: 030
     Dates: start: 20080811

REACTIONS (11)
  - ARTHRITIS [None]
  - ASTHENIA [None]
  - DECREASED APPETITE [None]
  - DYSURIA [None]
  - FLUID RETENTION [None]
  - HYPERTHYROIDISM [None]
  - HYPOTHYROIDISM [None]
  - INFLUENZA LIKE ILLNESS [None]
  - MULTIPLE SCLEROSIS [None]
  - NASOPHARYNGITIS [None]
  - WEIGHT INCREASED [None]
